FAERS Safety Report 9175536 (Version 1)
Quarter: 2013Q1

REPORT INFORMATION
  Report Type: Spontaneous
  Country: US (occurrence: US)
  Receive Date: 20130320
  Receipt Date: 20130320
  Transmission Date: 20140127
  Serious: No
  Sender: FDA-Public Use
  Company Number: US-PFIZER INC-2013088237

PATIENT
  Age: 68 Year
  Sex: Female
  Weight: 42.18 kg

DRUGS (3)
  1. BOSULIF [Suspect]
     Indication: CHRONIC MYELOID LEUKAEMIA
     Dosage: 300 MG, 1X/DAY
     Dates: start: 20130301
  2. COREG [Concomitant]
     Indication: CARDIAC FAILURE CONGESTIVE
     Dosage: 80 MG, 1X/DAY
  3. STARLIX [Concomitant]
     Indication: DIABETES MELLITUS
     Dosage: UNK, AS NEEDED

REACTIONS (12)
  - Headache [Not Recovered/Not Resolved]
  - Muscle spasms [Not Recovered/Not Resolved]
  - Back pain [Not Recovered/Not Resolved]
  - Diarrhoea [Not Recovered/Not Resolved]
  - Abdominal pain upper [Not Recovered/Not Resolved]
  - Nausea [Not Recovered/Not Resolved]
  - Cough [Not Recovered/Not Resolved]
  - Rhinorrhoea [Not Recovered/Not Resolved]
  - Chest pain [Not Recovered/Not Resolved]
  - Rhinalgia [Not Recovered/Not Resolved]
  - Pruritus [Not Recovered/Not Resolved]
  - Body temperature decreased [Not Recovered/Not Resolved]
